FAERS Safety Report 8524407-6 (Version None)
Quarter: 2012Q3

REPORT INFORMATION
  Report Type: 
  Country: None (occurrence: None)
  Receive Date: 20120720
  Receipt Date: 20120716
  Transmission Date: 20120928
  Serious: Yes (Other)
  Sender: FDA-Public Use
  Company Number: US-PFIZER INC-2012171605

PATIENT
  Sex: Female
  Weight: 91 kg

DRUGS (7)
  1. LYRICA [Suspect]
     Indication: NERVOUS SYSTEM DISORDER
  2. DILAUDID [Concomitant]
     Indication: NEURALGIA
     Dosage: 0.1 MG/ML, UNK
     Route: 037
  3. LYRICA [Suspect]
     Indication: FIBROMYALGIA
     Dosage: 150 MG, 3X/DAY
  4. LYRICA [Suspect]
     Indication: COMPLEX REGIONAL PAIN SYNDROME
     Dosage: 100 MG, 3X/DAY
  5. ZANAFLEX [Concomitant]
     Indication: BACK DISORDER
     Dosage: 4 MG, 3X/DAY
  6. MARCAINE [Concomitant]
     Indication: NEURALGIA
     Dosage: 12 MG/ML, UNK
     Route: 037
  7. LYRICA [Suspect]
     Indication: SPINAL CORD INJURY
     Dosage: 50 MG, 3X/DAY

REACTIONS (11)
  - BALANCE DISORDER [None]
  - GAIT DISTURBANCE [None]
  - WITHDRAWAL SYNDROME [None]
  - LOWER LIMB FRACTURE [None]
  - HYPERHIDROSIS [None]
  - DIARRHOEA [None]
  - MUSCLE SPASMS [None]
  - VOMITING [None]
  - RETCHING [None]
  - DIZZINESS [None]
  - FALL [None]
